FAERS Safety Report 4859944-9 (Version None)
Quarter: 2005Q4

REPORT INFORMATION
  Report Type: 
  Country: None (occurrence: None)
  Receive Date: 20051219
  Receipt Date: 20051207
  Transmission Date: 20060501
  Serious: Yes (Other)
  Sender: FDA-Public Use
  Company Number: JP-BRISTOL-MYERS SQUIBB COMPANY-13216809

PATIENT
  Age: 23 Year
  Sex: Male

DRUGS (7)
  1. EFAVIRENZ [Suspect]
     Indication: HIV INFECTION
     Route: 048
  2. STAVUDINE [Suspect]
     Indication: HIV INFECTION
     Route: 048
  3. LAMIVUDINE [Suspect]
     Indication: HIV INFECTION
     Route: 048
  4. LOPINAVIR + RITONAVIR [Suspect]
  5. ZIDOVUDINE [Suspect]
  6. ADEFOVIR DIPIVOXIL KIT [Suspect]
  7. DOXIL [Suspect]
     Dosage: MG/ML

REACTIONS (4)
  - ALANINE AMINOTRANSFERASE INCREASED [None]
  - ANAEMIA [None]
  - APLASIA PURE RED CELL [None]
  - HEPATITIS [None]
